FAERS Safety Report 7008951-9 (Version None)
Quarter: 2010Q3

REPORT INFORMATION
  Report Type: 
  Country: None (occurrence: None)
  Receive Date: 20100923
  Receipt Date: 20100915
  Transmission Date: 20110219
  Serious: Yes (Other)
  Sender: FDA-Public Use
  Company Number: PHHY2010FR36724

PATIENT
  Sex: Female
  Weight: 24 kg

DRUGS (2)
  1. RITALIN [Suspect]
     Indication: ATTENTION DEFICIT/HYPERACTIVITY DISORDER
     Dosage: 5 MG IN THE MORNING, 10 MG IN THE EVENING
     Dates: start: 20100522, end: 20100530
  2. RITALIN [Suspect]
     Dosage: 5 MG IN THE MORNING, 10 MG IN THE EVENING
     Dates: start: 20100720

REACTIONS (2)
  - ANGIOEDEMA [None]
  - SWELLING FACE [None]
